FAERS Safety Report 9702006 (Version 2)
Quarter: 2013Q4

REPORT INFORMATION
  Report Type: Report from Study
  Country: ES (occurrence: ES)
  Receive Date: 20131121
  Receipt Date: 20131204
  Transmission Date: 20140711
  Serious: Yes (Hospitalization)
  Sender: FDA-Public Use
  Company Number: ES-PFIZER INC-2013326294

PATIENT
  Age: 71 Year
  Sex: Male

DRUGS (6)
  1. TEMSIROLIMUS [Suspect]
     Indication: RENAL CELL CARCINOMA
     Dosage: 10 MG/ML,  WEEKLY
     Route: 042
     Dates: start: 20100819, end: 20101217
  2. ZOLADEX [Concomitant]
     Indication: PROSTATE CANCER
     Dosage: UNK
     Route: 058
  3. CASODEX [Concomitant]
     Indication: PROSTATE CANCER
     Dosage: UNK
     Route: 048
  4. CARVEDILOL [Concomitant]
     Dosage: UNK
     Route: 048
  5. CAPTOPRIL [Concomitant]
     Dosage: UNK
     Route: 048
  6. LOVASTATIN [Concomitant]
     Dosage: UNK
     Route: 048

REACTIONS (1)
  - Bronchopneumonia [Recovered/Resolved]
